FAERS Safety Report 5170568-9 (Version None)
Quarter: 2006Q4

REPORT INFORMATION
  Report Type: 
  Country: None (occurrence: None)
  Receive Date: 20061205
  Receipt Date: 20061123
  Transmission Date: 20070319
  Serious: No
  Sender: FDA-Public Use
  Company Number: E2020-00716-SPO-FR

PATIENT
  Sex: Female

DRUGS (1)
  1. ARICEPT [Suspect]
     Indication: DRUG USE FOR UNKNOWN INDICATION
     Dosage: 5 + 10MG, 1 IN 1 D, ORAL - SEE IMAGE
     Route: 048

REACTIONS (2)
  - COMA [None]
  - VOMITING [None]
